FAERS Safety Report 14747292 (Version 2)
Quarter: 2019Q2

REPORT INFORMATION
  Report Type: Spontaneous
  Country: US (occurrence: US)
  Receive Date: 20180411
  Receipt Date: 20190408
  Transmission Date: 20190711
  Serious: Yes (Hospitalization, Other)
  Sender: FDA-Public Use
  Company Number: US-VIFOR (INTERNATIONAL) INC.-VIT-2018-03371

PATIENT
  Age: 86 Year
  Sex: Male

DRUGS (21)
  1. ASPIRIN. [Concomitant]
     Active Substance: ASPIRIN
  2. FLONASE [Concomitant]
     Active Substance: FLUTICASONE PROPIONATE
  3. VALSARTAN. [Concomitant]
     Active Substance: VALSARTAN
  4. FUROSEMIDE. [Concomitant]
     Active Substance: FUROSEMIDE
  5. VITAMIN B12 [Concomitant]
     Active Substance: CYANOCOBALAMIN
  6. DIGOXIN. [Concomitant]
     Active Substance: DIGOXIN
  7. VITAMIN E [Concomitant]
     Active Substance: .ALPHA.-TOCOPHEROL
  8. VELTASSA [Suspect]
     Active Substance: PATIROMER
     Indication: HYPERKALAEMIA
     Route: 048
     Dates: start: 20160510
  9. DILTIAZEM HYDROCHLORIDE. [Concomitant]
     Active Substance: DILTIAZEM HYDROCHLORIDE
  10. TURMERIC [Concomitant]
     Active Substance: HERBALS\TURMERIC
  11. BAYER LOW DOSE [Concomitant]
     Active Substance: ASPIRIN
  12. NITROSTAT [Concomitant]
     Active Substance: NITROGLYCERIN
  13. PLAVIX [Concomitant]
     Active Substance: CLOPIDOGREL BISULFATE
  14. ALIGN [Concomitant]
     Active Substance: BIFIDOBACTERIUM LONGUM SUBSP. INFANTIS
  15. ATORVASTATIN [Concomitant]
     Active Substance: ATORVASTATIN
  16. COENZYME Q10 [Concomitant]
     Active Substance: UBIDECARENONE
  17. CALCIUM [Concomitant]
     Active Substance: CALCIUM
  18. ENALAPRIL MALEATE. [Concomitant]
     Active Substance: ENALAPRIL MALEATE
  19. FENOFIBRATE. [Concomitant]
     Active Substance: FENOFIBRATE
  20. LUPRON DEPOT [Concomitant]
     Active Substance: LEUPROLIDE ACETATE
  21. VITAMIN D3 [Concomitant]
     Active Substance: CHOLECALCIFEROL

REACTIONS (3)
  - Internal haemorrhage [Unknown]
  - Fall [Unknown]
  - Off label use [Unknown]

NARRATIVE: CASE EVENT DATE: 20160510
